FAERS Safety Report 23546275 (Version 1)
Quarter: 2024Q1

REPORT INFORMATION
  Report Type: Spontaneous
  Country: US (occurrence: US)
  Receive Date: 20240220
  Receipt Date: 20240220
  Transmission Date: 20240410
  Serious: No
  Sender: FDA-Public Use
  Company Number: US-JNJFOC-20240246051

PATIENT
  Sex: Female

DRUGS (10)
  1. SPRAVATO [Suspect]
     Active Substance: ESKETAMINE
     Indication: Depression
  2. BENADRYL [Suspect]
     Active Substance: DIPHENHYDRAMINE HYDROCHLORIDE
     Indication: Product used for unknown indication
     Route: 065
  3. SIMVASTATIN [Concomitant]
     Active Substance: SIMVASTATIN
  4. LOSARTAN [Concomitant]
     Active Substance: LOSARTAN
  5. CLONIDINE [Concomitant]
     Active Substance: CLONIDINE
  6. ELIQUIS [Concomitant]
     Active Substance: APIXABAN
  7. LYRICA [Concomitant]
     Active Substance: PREGABALIN
  8. TALTZ [Concomitant]
     Active Substance: IXEKIZUMAB
  9. CLONAZEPAM [Concomitant]
     Active Substance: CLONAZEPAM
  10. TRIAMCINOLONE [Concomitant]
     Active Substance: TRIAMCINOLONE

REACTIONS (1)
  - Anger [Unknown]
